FAERS Safety Report 8133130 (Version 4)
Quarter: 2013Q3

REPORT INFORMATION
  Report Type: Report from Study
  Country: FR (occurrence: FR)
  Receive Date: 20110913
  Receipt Date: 20130813
  Transmission Date: 20140515
  Serious: Yes (Hospitalization)
  Sender: FDA-Public Use
  Company Number: FR-ROCHE-801143

PATIENT
  Age: 65 Year
  Sex: Male

DRUGS (3)
  1. BEVACIZUMAB [Suspect]
     Indication: LUNG NEOPLASM MALIGNANT
     Dosage: FREQUENCY:/4W
     Route: 065
     Dates: start: 20101122, end: 20110719
  2. PACLITAXEL [Concomitant]
     Indication: LUNG NEOPLASM MALIGNANT
     Dosage: DOSE: 80 MG/M2, FREQUENCY: /W
     Route: 065
     Dates: start: 20101122, end: 20110801
  3. PREDNISOLONE [Concomitant]
     Dosage: DOSE: 20 MG/D
     Route: 065

REACTIONS (1)
  - Pneumothorax [Not Recovered/Not Resolved]
